FAERS Safety Report 23731684 (Version 1)
Quarter: 2024Q2

REPORT INFORMATION
  Report Type: Spontaneous
  Country: US (occurrence: None)
  Receive Date: 20240410
  Receipt Date: 20240410
  Transmission Date: 20240716
  Serious: No
  Sender: FDA-Public Use
  Company Number: None

PATIENT
  Age: 37 Year
  Sex: Female
  Weight: 69 kg

DRUGS (6)
  1. CREON [Suspect]
     Active Substance: PANCRELIPASE AMYLASE\PANCRELIPASE LIPASE\PANCRELIPASE PROTEASE
     Indication: Pancreatic failure
     Dosage: 8 CAPSULES AS NEEDED ORAL?FREQUENCY : AS NEEDED;?
     Route: 048
  2. Prebiotics [Concomitant]
  3. VITAMINS [Concomitant]
     Active Substance: VITAMINS
  4. vitamin c [Concomitant]
  5. vitamin D [Concomitant]
  6. VITAMIN B COMPLEX [Concomitant]

REACTIONS (3)
  - Dehydration [None]
  - Skin wrinkling [None]
  - Dry skin [None]

NARRATIVE: CASE EVENT DATE: 20240401
